FAERS Safety Report 5708470-3 (Version None)
Quarter: 2008Q2

REPORT INFORMATION
  Report Type: 
  Country: None (occurrence: None)
  Receive Date: 20080417
  Receipt Date: 20080407
  Transmission Date: 20081010
  Serious: Yes (Death, Other)
  Sender: FDA-Public Use
  Company Number: US-PFIZER INC-2008008194

PATIENT
  Sex: Male

DRUGS (2)
  1. BEXTRA [Suspect]
     Indication: PAIN MANAGEMENT
     Route: 048
     Dates: start: 20040901, end: 20050118
  2. BEXTRA [Suspect]
     Indication: BACK DISORDER

REACTIONS (3)
  - MYOCARDIAL INFARCTION [None]
  - OEDEMA [None]
  - RASH [None]
